FAERS Safety Report 8612368-0 (Version None)
Quarter: 2012Q3

REPORT INFORMATION
  Report Type: 
  Country: None (occurrence: None)
  Receive Date: 20120822
  Receipt Date: 20120820
  Transmission Date: 20120928
  Serious: Yes (Death)
  Sender: FDA-Public Use
  Company Number: FR-ALLERGAN-1211554US

PATIENT
  Age: 40 Year
  Sex: Male

DRUGS (8)
  1. BOTOX [Suspect]
     Dosage: 50 UNITS, SINGLE
     Route: 030
     Dates: start: 20120730, end: 20120730
  2. NEBIVOLOL [Concomitant]
     Dosage: 5 MG, UNK
  3. PERINDOPRIL ERBUMINE [Concomitant]
     Dosage: 5 MG, UNK
  4. CLONAZEPAM [Concomitant]
     Dosage: 9 GTT, UNK
     Route: 048
  5. BOTOX [Suspect]
     Dosage: 200 UNITS, SINGLE
     Route: 030
     Dates: start: 20120730, end: 20120730
  6. ESCITALOPRAM [Concomitant]
     Dosage: 10 MG, UNK
  7. BOTOX [Suspect]
     Indication: MUSCLE SPASTICITY
     Dosage: 100 UNITS, SINGLE
     Dates: start: 20120730, end: 20120730
  8. LIORESAL [Concomitant]
     Dosage: 9 DF, QD

REACTIONS (1)
  - DEATH [None]
